FAERS Safety Report 9420672 (Version 1)
Quarter: 2013Q3

REPORT INFORMATION
  Report Type: Spontaneous
  Country: TR (occurrence: TR)
  Receive Date: 20130725
  Receipt Date: 20130725
  Transmission Date: 20140515
  Serious: Yes (Death, Other)
  Sender: FDA-Public Use
  Company Number: PHHY2013TR077682

PATIENT
  Age: 31 Year
  Sex: Male

DRUGS (10)
  1. FLUCONAZOLE [Suspect]
     Dosage: 150 MG/DAY
     Route: 048
  2. FLUCONAZOLE [Suspect]
     Indication: ANTIFUNGAL PROPHYLAXIS
     Route: 042
  3. CIPROFLOXACIN [Suspect]
     Dosage: 200 MG, BID
     Route: 042
  4. PREDNISOLONE [Suspect]
     Indication: IMMUNOSUPPRESSION
     Dosage: 500 MG ON DAY 1
     Route: 042
  5. PREDNISOLONE [Suspect]
     Dosage: 250 MG DAY 2
     Route: 042
  6. PREDNISOLONE [Suspect]
     Dosage: 40 MG
     Route: 042
  7. TACROLIMUS [Suspect]
     Indication: IMMUNOSUPPRESSION
     Dosage: 5 MG, BID
  8. MYCOPHENOLATE MOFETIL [Suspect]
     Indication: IMMUNOSUPPRESSION
     Dosage: 720 MG, BID
  9. PIPERACILLIN+TAZOBACTAM [Suspect]
     Indication: ANTIBIOTIC PROPHYLAXIS
  10. BASILIXIMAB [Suspect]
     Indication: IMMUNOSUPPRESSION
     Dosage: 20MG ON DAYS 0 AND 4

REACTIONS (8)
  - Systemic candida [Fatal]
  - Oropharyngeal plaque [Fatal]
  - Pyrexia [Fatal]
  - Mucosal ulceration [Fatal]
  - Disseminated intravascular coagulation [Fatal]
  - Bone marrow failure [Fatal]
  - Neutropenia [Fatal]
  - Intestine transplant rejection [Unknown]
